FAERS Safety Report 9162351 (Version 1)
Quarter: 2013Q1

REPORT INFORMATION
  Report Type: Spontaneous
  Country: US (occurrence: None)
  Receive Date: 20130222
  Receipt Date: 20130222
  Transmission Date: 20140127
  Serious: Yes (Hospitalization)
  Sender: FDA-Public Use
  Company Number: 2013AP003187

PATIENT
  Age: 89 Year
  Sex: Female

DRUGS (4)
  1. QUETIAPINE FUMARATE (QUETIAPINE FUMARATE) [Suspect]
     Indication: PRODUCT USED FOR UNKNOWN INDICATION
     Route: 048
     Dates: start: 20130103, end: 20130109
  2. FUROSEMIDE (FUROSEMIDE) [Concomitant]
  3. ZANEDIP (LERCANIDIPINE HYDROCHLORIDE) [Concomitant]
  4. ZYLORIC (ALLOPURINOL) [Concomitant]

REACTIONS (4)
  - Dry mouth [None]
  - Glossodynia [None]
  - Hyponatraemia [None]
  - Malaise [None]
